FAERS Safety Report 8576596 (Version 2)
Quarter: 2014Q1

REPORT INFORMATION
  Report Type: Spontaneous
  Country: US (occurrence: None)
  Receive Date: 20120323
  Receipt Date: 20130305
  Transmission Date: 20141002
  Serious: Yes (Other)
  Sender: FDA-Public Use
  Company Number: 163-21880-11113638

PATIENT
  Age: 78 Year
  Sex: Male
  Weight: 106.6 kg

DRUGS (16)
  1. REVLIMID [Suspect]
     Indication: PLASMA CELL MYELOMA
     Dosage: 25 MG, X21 DAYS, PO
     Route: 048
     Dates: start: 20111030
  2. ACYCLOVIR [Concomitant]
  3. AMLODIPINE [Concomitant]
  4. ASPIRIN (ACETYLSALICYLIC ACID) [Concomitant]
  5. BACTRIM [Concomitant]
  6. DEXAMETHASONE (DEXAMETHASONE) [Concomitant]
  7. DILTIAZEM [Concomitant]
  8. FINASTERIDE [Concomitant]
  9. FOLIC ACID [Concomitant]
  10. FOLTX [Concomitant]
  11. ICAPS [Concomitant]
  12. MELOXICAM [Concomitant]
  13. VITAMINS [Concomitant]
  14. PRADAXA [Concomitant]
  15. ZOMETA (ZOLEDRONIC ACID) [Concomitant]
  16. LASIX (FUROSEMIDE) [Concomitant]

REACTIONS (2)
  - Atrial fibrillation [None]
  - Fatigue [None]
